FAERS Safety Report 16983519 (Version 1)
Quarter: 2019Q4

REPORT INFORMATION
  Report Type: Spontaneous
  Country: US (occurrence: US)
  Receive Date: 20190917
  Receipt Date: 20190917
  Transmission Date: 20200122
  Serious: Yes (Life-Threatening, Disabling)
  Sender: FDA-Public Use
  Company Number: None

PATIENT
  Age: 82 Year
  Sex: Male
  Weight: 88.9 kg

DRUGS (12)
  1. METFORMIN [Concomitant]
     Active Substance: METFORMIN HYDROCHLORIDE
  2. AMLODIPINE BESYLATE. [Concomitant]
     Active Substance: AMLODIPINE BESYLATE
  3. EPIPEN [Concomitant]
     Active Substance: EPINEPHRINE
  4. SUPPLEMENTAL VITAMIN ^D^ [Concomitant]
  5. AMLODIPINE-BENAZEPRIL 10-40MG [Suspect]
     Active Substance: AMLODIPINE BESYLATE\BENAZEPRIL HYDROCHLORIDE
     Indication: HYPERTENSION
     Dosage: ?          QUANTITY:1 DF DOSAGE FORM;?
     Route: 048
     Dates: start: 20070702, end: 20190803
  6. ROSUVASTATIN. [Concomitant]
     Active Substance: ROSUVASTATIN
  7. ASPIRIN. [Concomitant]
     Active Substance: ASPIRIN
  8. FLONASE [Concomitant]
     Active Substance: FLUTICASONE PROPIONATE
  9. HCTZ [Concomitant]
     Active Substance: HYDROCHLOROTHIAZIDE
  10. AMOXICILLIN. [Concomitant]
     Active Substance: AMOXICILLIN
  11. OXYBUTYNIN. [Concomitant]
     Active Substance: OXYBUTYNIN CHLORIDE
  12. MULTI-VITAMIN [Concomitant]
     Active Substance: .ALPHA.-TOCOPHEROL ACETATE, DL-\ASCORBIC ACID\CYANOCOBALAMIN\FLUORIDE ION\FOLIC ACID\NIACIN\PYRIDOXINE\RIBOFLAVIN\THIAMINE\VITAMIN A\VITAMIN D

REACTIONS (1)
  - Angioedema [None]

NARRATIVE: CASE EVENT DATE: 20190802
